FAERS Safety Report 24005153 (Version 1)
Quarter: 2024Q2

REPORT INFORMATION
  Report Type: Spontaneous
  Country: US (occurrence: None)
  Receive Date: 20240621
  Receipt Date: 20240621
  Transmission Date: 20240715
  Serious: Yes (Hospitalization)
  Sender: FDA-Public Use
  Company Number: None

PATIENT
  Sex: Female

DRUGS (2)
  1. VENCLEXTA [Suspect]
     Active Substance: VENETOCLAX
     Indication: Acute myeloid leukaemia
     Dosage: 100MG DAILY ORAL
     Route: 048
     Dates: start: 202404
  2. Potassoi, supplementation [Concomitant]

REACTIONS (8)
  - Pyrexia [None]
  - Decreased appetite [None]
  - Weight decreased [None]
  - Insomnia [None]
  - Blood potassium decreased [None]
  - Constipation [None]
  - Haematochezia [None]
  - Therapy interrupted [None]

NARRATIVE: CASE EVENT DATE: 20240604
